FAERS Safety Report 6631450-0 (Version None)
Quarter: 2010Q1

REPORT INFORMATION
  Report Type: 
  Country: None (occurrence: None)
  Receive Date: 20100312
  Receipt Date: 20100303
  Transmission Date: 20100710
  Serious: Yes (Hospitalization, Other)
  Sender: FDA-Public Use
  Company Number: TR-CUBIST-2010S1000114

PATIENT
  Age: 79 Year
  Sex: Male

DRUGS (1)
  1. CUBICIN [Suspect]
     Indication: ENDOCARDITIS
     Route: 042

REACTIONS (3)
  - DRUG INTERACTION [None]
  - FACE OEDEMA [None]
  - OEDEMA MOUTH [None]
